FAERS Safety Report 6093879-1 (Version None)
Quarter: 2009Q1

REPORT INFORMATION
  Report Type: 
  Country: None (occurrence: None)
  Receive Date: 20090223
  Receipt Date: 20090206
  Transmission Date: 20090719
  Serious: Yes (Other)
  Sender: FDA-Public Use
  Company Number: 2009S1001717

PATIENT
  Age: 74 Year
  Sex: Female

DRUGS (1)
  1. PHOSPHORAL ORAL SOLUTION (SODIUM PHOSPHATE DIBASTIC/SODIUM PHOSPHATE M [Suspect]
     Indication: COLONOSCOPY
     Dosage: ORAL_SOL; PO
     Route: 048

REACTIONS (5)
  - BLOOD CREATININE INCREASED [None]
  - DRUG INEFFECTIVE [None]
  - FATIGUE [None]
  - NEPHROPATHY [None]
  - THIRST [None]
